FAERS Safety Report 9547505 (Version 1)
Quarter: 2013Q2

REPORT INFORMATION
  Report Type: Spontaneous
  Country: US (occurrence: None)
  Receive Date: 20130606
  Receipt Date: 20130606
  Transmission Date: 20140414
  Serious: Yes (Other)
  Sender: FDA-Public Use
  Company Number: 163-POMAL-13041688

PATIENT
  Age: 59 Year
  Sex: Female

DRUGS (3)
  1. POMALYST (POMALIDOMIDE) (4 MILLIGRAM, CAPSULES) [Suspect]
     Indication: PLASMA CELL MYELOMA
     Dosage: 21 IN 21 D
     Route: 048
     Dates: start: 20130321, end: 20130402
  2. LEVAQUIN [Suspect]
  3. ATIVAN (LORAZEPAM) [Concomitant]

REACTIONS (4)
  - Platelet count decreased [None]
  - Urticaria [None]
  - White blood cell count decreased [None]
  - Rash [None]
